FAERS Safety Report 10162885 (Version 2)
Quarter: 2014Q2

REPORT INFORMATION
  Report Type: Spontaneous
  Country: US (occurrence: US)
  Receive Date: 20140509
  Receipt Date: 20140521
  Transmission Date: 20141212
  Serious: Yes (Hospitalization, Other)
  Sender: FDA-Public Use
  Company Number: US-009507513-1404USA015571

PATIENT
  Sex: Female
  Weight: 51.7 kg

DRUGS (6)
  1. FOSAMAX PLUS D [Suspect]
     Dosage: 70MG/2800 UNITS
     Route: 048
  2. FOSAMAX [Suspect]
     Indication: OSTEOPOROSIS
     Dosage: UNK
     Dates: start: 2006, end: 2011
  3. ALENDRONATE SODIUM [Suspect]
     Indication: OSTEOPOROSIS
     Dosage: 70 MG, UNK
     Dates: start: 2006, end: 2011
  4. GLUCOPHAGE [Concomitant]
     Indication: TYPE 1 DIABETES MELLITUS
  5. INSULIN [Concomitant]
     Indication: TYPE 1 DIABETES MELLITUS
  6. METFORMIN [Concomitant]
     Indication: TYPE 2 DIABETES MELLITUS

REACTIONS (18)
  - Femur fracture [Unknown]
  - Intramedullary rod insertion [Unknown]
  - Intra-cerebral aneurysm operation [Unknown]
  - Cranioplasty [Unknown]
  - Gliosis [Unknown]
  - Encephalomalacia [Unknown]
  - Demyelination [Unknown]
  - Cerebral atrophy [Unknown]
  - Dysuria [Recovered/Resolved]
  - Pollakiuria [Recovered/Resolved]
  - Tremor [Not Recovered/Not Resolved]
  - Contusion [Unknown]
  - Hyperlipidaemia [Unknown]
  - Anaemia [Unknown]
  - Urinary tract infection [Unknown]
  - Arteriosclerosis [Unknown]
  - Scoliosis [Unknown]
  - Low turnover osteopathy [Unknown]
